FAERS Safety Report 14603241 (Version 1)
Quarter: 2018Q1

REPORT INFORMATION
  Report Type: Report from Study
  Country: None (occurrence: BR)
  Receive Date: 20180306
  Receipt Date: 20180306
  Transmission Date: 20180509
  Serious: Yes (Other)
  Sender: FDA-Public Use
  Company Number: BR-ABBVIE-18K-020-2273666-00

PATIENT
  Age: 54 Year
  Sex: Female
  Weight: 72 kg

DRUGS (6)
  1. SYNTHROID [Concomitant]
     Active Substance: LEVOTHYROXINE SODIUM
     Indication: THYROID DISORDER
  2. BUPROPION. [Concomitant]
     Active Substance: BUPROPION
     Indication: DEPRESSION
  3. HUMIRA [Suspect]
     Active Substance: ADALIMUMAB
     Indication: ANKYLOSING SPONDYLITIS
     Route: 058
     Dates: start: 20170530, end: 2017
  4. BUPROPION. [Concomitant]
     Active Substance: BUPROPION
     Indication: WEIGHT DECREASED
  5. CONCOR [Concomitant]
     Active Substance: BISOPROLOL FUMARATE
     Indication: BUNDLE BRANCH BLOCK LEFT
  6. HUMIRA [Suspect]
     Active Substance: ADALIMUMAB
     Route: 058

REACTIONS (7)
  - Immunodeficiency [Recovered/Resolved]
  - Influenza [Recovered/Resolved]
  - Herpes virus infection [Recovered/Resolved]
  - Nasopharyngitis [Recovered/Resolved]
  - Candida infection [Recovered/Resolved]
  - Rotator cuff syndrome [Recovered/Resolved]
  - Gastrointestinal bacterial infection [Recovered/Resolved]

NARRATIVE: CASE EVENT DATE: 201710
